FAERS Safety Report 9607631 (Version 1)
Quarter: 2013Q4

REPORT INFORMATION
  Report Type: Spontaneous
  Country: US (occurrence: None)
  Receive Date: 20131007
  Receipt Date: 20131007
  Transmission Date: 20140711
  Serious: Yes (Life-Threatening, Hospitalization, Other)
  Sender: FDA-Public Use
  Company Number: None

PATIENT
  Age: 15 Year
  Sex: Female
  Weight: 77.11 kg

DRUGS (2)
  1. SINGULAIR [Suspect]
     Indication: ASTHMA
     Dosage: 1 PILL, ONCE DAILY, TAKEN BY MOUTH
     Route: 048
  2. SINGULAIR [Suspect]
     Indication: MULTIPLE ALLERGIES
     Dosage: 1 PILL, ONCE DAILY, TAKEN BY MOUTH
     Route: 048

REACTIONS (7)
  - Depression [None]
  - Obsessive-compulsive disorder [None]
  - Anxiety [None]
  - Sleep disorder [None]
  - Hallucinations, mixed [None]
  - Self injurious behaviour [None]
  - Suicide attempt [None]
